FAERS Safety Report 7746259-4 (Version None)
Quarter: 2011Q3

REPORT INFORMATION
  Report Type: 
  Country: None (occurrence: None)
  Receive Date: 20110913
  Receipt Date: 20110831
  Transmission Date: 20111222
  Serious: Yes (Hospitalization)
  Sender: FDA-Public Use
  Company Number: GB-ROCHE-800151

PATIENT
  Sex: Male
  Weight: 86.5 kg

DRUGS (1)
  1. VEMURAFENIB [Suspect]
     Dosage: DATE OF LAST DOSE PRIOR TO SAE: 30 AUG 2011.
     Route: 048
     Dates: start: 20110711

REACTIONS (1)
  - LOCAL SWELLING [None]
